FAERS Safety Report 12471350 (Version 1)
Quarter: 2016Q2

REPORT INFORMATION
  Report Type: Spontaneous
  Country: US (occurrence: US)
  Receive Date: 20160616
  Receipt Date: 20160616
  Transmission Date: 20160815
  Serious: No
  Sender: FDA-Public Use
  Company Number: US-PFIZER INC-2016301688

PATIENT
  Sex: Female

DRUGS (2)
  1. ADVIL [Suspect]
     Active Substance: IBUPROFEN
     Indication: TOOTH DISORDER
     Dosage: TABLET, 800 MG FOLLOWED BY 800 MG 4 HOURS LATER AND FOLLOWED BY 400 MG 4 HOURS LATER
     Dates: end: 201512
  2. ESTROVEN WEIGHT MANAGEMENT [Concomitant]
     Dosage: 1 DF, DAILY (ONE TABLET A DAY)

REACTIONS (1)
  - Tinnitus [Not Recovered/Not Resolved]

NARRATIVE: CASE EVENT DATE: 201512
